FAERS Safety Report 17020384 (Version 1)
Quarter: 2019Q4

REPORT INFORMATION
  Report Type: Spontaneous
  Country: US (occurrence: US)
  Receive Date: 20191111
  Receipt Date: 20191111
  Transmission Date: 20200122
  Serious: Yes (Death)
  Sender: FDA-Public Use
  Company Number: None

PATIENT
  Sex: Female
  Weight: 99.34 kg

DRUGS (1)
  1. OCREVUS [Suspect]
     Active Substance: OCRELIZUMAB
     Indication: MULTIPLE SCLEROSIS

REACTIONS (7)
  - Sinusitis [None]
  - Mobility decreased [None]
  - Meningitis [None]
  - West Nile virus test positive [None]
  - Encephalopathy [None]
  - Lethargy [None]
  - Asthenia [None]
